FAERS Safety Report 9411274 (Version 2)
Quarter: 2013Q3

REPORT INFORMATION
  Report Type: Report from Study
  Country: US (occurrence: US)
  Receive Date: 20130722
  Receipt Date: 20130805
  Transmission Date: 20140515
  Serious: Yes (Hospitalization)
  Sender: FDA-Public Use
  Company Number: US-BIOGENIDEC-2013BI063666

PATIENT
  Age: 45 Year
  Sex: Female
  Weight: 93 kg

DRUGS (11)
  1. TYSABRI [Suspect]
     Indication: RELAPSING-REMITTING MULTIPLE SCLEROSIS
     Route: 042
     Dates: start: 20130206
  2. PHRENILIN [Concomitant]
     Indication: HEADACHE
     Dates: start: 201207
  3. NEURONTIN [Concomitant]
     Indication: NEURALGIA
     Dates: start: 20130117
  4. PRISTIQ EXTENDED-RELEASE [Concomitant]
     Indication: ANTIDEPRESSANT THERAPY
     Dates: start: 201103
  5. TOPAMAX [Concomitant]
     Indication: CONVULSION
     Dates: start: 20120705
  6. DIAZEPAM [Concomitant]
     Indication: INSOMNIA
     Dates: start: 201103
  7. PERCOCET 5/325 [Concomitant]
     Indication: PAIN
     Dates: start: 20130205
  8. ALPRAZOLAM [Concomitant]
     Indication: ANXIETY
     Route: 048
     Dates: start: 20130205
  9. WARFARIN [Concomitant]
     Indication: ANTICOAGULANT THERAPY
     Dates: start: 20130301
  10. NUVIGIL [Concomitant]
     Indication: FATIGUE
     Dates: start: 20130703, end: 20130707
  11. AMANTADINE [Concomitant]
     Route: 048
     Dates: start: 20130501, end: 20130703

REACTIONS (1)
  - Unresponsive to stimuli [Recovered/Resolved]
